FAERS Safety Report 5339749-5 (Version None)
Quarter: 2007Q2

REPORT INFORMATION
  Report Type: 
  Country: None (occurrence: None)
  Receive Date: 20070531
  Receipt Date: 20070524
  Transmission Date: 20071010
  Serious: Yes (Disabling)
  Sender: FDA-Public Use
  Company Number: PHRM2007FR01112

PATIENT
  Age: 54 Year
  Sex: Female
  Weight: 65 kg

DRUGS (2)
  1. ZOMETA [Suspect]
     Indication: METASTASES TO BONE
     Dosage: UNK, UNK
     Route: 042
     Dates: start: 20041001, end: 20060301
  2. SUTENT [Suspect]
     Indication: RENAL CANCER METASTATIC
     Dates: start: 20060801

REACTIONS (8)
  - COMPUTERISED TOMOGRAM ABNORMAL [None]
  - MUCOSAL INFLAMMATION [None]
  - OSTEOLYSIS [None]
  - OSTEONECROSIS [None]
  - OSTEOSCLEROSIS [None]
  - PAIN [None]
  - TOOTH DISORDER [None]
  - TOOTH EXTRACTION [None]
